FAERS Safety Report 5944760-7 (Version None)
Quarter: 2008Q4

REPORT INFORMATION
  Report Type: 
  Country: None (occurrence: None)
  Receive Date: 20081105
  Receipt Date: 20081024
  Transmission Date: 20090506
  Serious: Yes (Hospitalization)
  Sender: FDA-Public Use
  Company Number: CIP08001404

PATIENT
  Age: 74 Year
  Sex: Female
  Weight: 65 kg

DRUGS (6)
  1. ASACOL [Suspect]
     Dosage: 800 MG THREE TIMES A DAY, ORAL
     Route: 048
     Dates: start: 20050906
  2. ATENOLOL [Concomitant]
  3. LEVOXYL [Concomitant]
  4. FISH OIL (FISH OIL) [Concomitant]
  5. CALCIUM CARBONATE W/VITAMIN D (CALCIUM  CARBONATE, COLECALCIFEROL) [Concomitant]
  6. TRAZODONE HCL [Concomitant]

REACTIONS (7)
  - CONDITION AGGRAVATED [None]
  - DEHYDRATION [None]
  - DIARRHOEA [None]
  - DRUG INEFFECTIVE [None]
  - MEDICATION RESIDUE [None]
  - NAUSEA [None]
  - VOMITING [None]
